FAERS Safety Report 10384622 (Version 1)
Quarter: 2014Q1

REPORT INFORMATION
  Report Type: Spontaneous
  Country: US (occurrence: None)
  Receive Date: 20140306
  Receipt Date: 20140306
  Transmission Date: 20141002
  Serious: Yes (Other)
  Sender: FDA-Public Use
  Company Number: 163-21880-13102319

PATIENT
  Age: 66 Year
  Sex: Male
  Weight: 93.2 kg

DRUGS (10)
  1. REVLIMID (LENALIDOMIDE) (10 MILLIGRAM, CAPSULES) [Suspect]
     Indication: PLASMA CELL MYELOMA
     Dosage: 7.5 MG, 21 IN 28 D, PO
     Route: 048
     Dates: start: 20130620
  2. AMLODIPINE [Concomitant]
  3. CRESTOR (ROSUVASTATIN) [Concomitant]
  4. MULTIVITAMIN (MULTIVITAMINS) [Concomitant]
  5. FISH OIL [Concomitant]
  6. BENICAR (OLMESARTAN MEDOXOMIL) [Concomitant]
  7. DEXAMETHASONE [Concomitant]
  8. CALCIUM [Concomitant]
  9. GABAPENTIN [Concomitant]
  10. LORTAB (VICODIN) [Concomitant]

REACTIONS (6)
  - Syncope [None]
  - Diarrhoea [None]
  - Dehydration [None]
  - Fatigue [None]
  - Anaemia [None]
  - Neuropathy peripheral [None]
